FAERS Safety Report 9196707 (Version 1)
Quarter: 2013Q1

REPORT INFORMATION
  Report Type: Spontaneous
  Country: US (occurrence: US)
  Receive Date: 20130328
  Receipt Date: 20130328
  Transmission Date: 20140127
  Serious: Yes (Life-Threatening, Hospitalization, Other)
  Sender: FDA-Public Use
  Company Number: US-NOVOPROD-374079

PATIENT
  Age: 66 Year
  Sex: Female
  Weight: 76.64 kg

DRUGS (1)
  1. NOVOLOG [Suspect]
     Indication: TYPE 2 DIABETES MELLITUS
     Dosage: UNKNOWN
     Route: 058

REACTIONS (7)
  - Cardiac arrest [Recovered/Resolved]
  - Cerebrovascular accident [Not Recovered/Not Resolved]
  - Heart rate decreased [Recovered/Resolved]
  - Laceration [Unknown]
  - Vertigo [Not Recovered/Not Resolved]
  - Somnolence [Unknown]
  - Diabetes mellitus inadequate control [Unknown]
